FAERS Safety Report 9398505 (Version 1)
Quarter: 2013Q3

REPORT INFORMATION
  Report Type: Spontaneous
  Country: GR (occurrence: GR)
  Receive Date: 20130712
  Receipt Date: 20130712
  Transmission Date: 20140515
  Serious: Yes (Other)
  Sender: FDA-Public Use
  Company Number: GR-BRISTOL-MYERS SQUIBB COMPANY-19071240

PATIENT
  Age: 72 Year
  Sex: Male

DRUGS (4)
  1. SPRYCEL (CML) TABS 50 MG [Suspect]
     Indication: CHRONIC MYELOID LEUKAEMIA
     Route: 048
     Dates: start: 20130208
  2. OLMESARTAN MEDOXOMIL [Concomitant]
     Indication: HYPERTENSION
  3. CARVEDILOL [Concomitant]
  4. ZYLORIC [Concomitant]

REACTIONS (1)
  - Polycythaemia [Unknown]
